FAERS Safety Report 7622923-2 (Version None)
Quarter: 2011Q3

REPORT INFORMATION
  Report Type: 
  Country: None (occurrence: None)
  Receive Date: 20110720
  Receipt Date: 20110715
  Transmission Date: 20111222
  Serious: Yes (Death, Hospitalization, Other)
  Sender: FDA-Public Use
  Company Number: US-BAYER-201041848NA

PATIENT
  Age: 69 Year
  Sex: Female
  Weight: 85 kg

DRUGS (24)
  1. TRASYLOL [Suspect]
     Indication: CORONARY ARTERY BYPASS
     Dosage: UNK TEST DOSE
     Route: 042
     Dates: start: 20040322, end: 20040322
  2. TRASYLOL [Suspect]
     Dosage: 50 CC/HOUR
     Route: 042
     Dates: start: 20040322, end: 20040322
  3. PROTONIX [Concomitant]
     Dosage: 40 MG, QD
     Route: 048
  4. CORDARONE [Concomitant]
     Dosage: 200 MG, TID
     Route: 048
  5. PROTAMINE SULFATE [Concomitant]
     Dosage: 600 MG
     Route: 042
     Dates: start: 20040322, end: 20040322
  6. CARDURA [Concomitant]
     Dosage: 40 MG, BID
     Route: 048
  7. ASPIRIN [Concomitant]
     Dosage: 325 MG, QD
     Route: 048
  8. METOPROLOL TARTRATE [Concomitant]
     Dosage: 75 MG, TID
     Route: 048
  9. ALBUMIN (HUMAN) [Concomitant]
     Dosage: 25 GM
     Route: 042
     Dates: start: 20040322, end: 20040322
  10. TRASYLOL [Suspect]
     Dosage: 200 ML LOADING DOSE
     Route: 042
     Dates: start: 20040322, end: 20040322
  11. ISOPTIN [Concomitant]
     Dosage: 180 MG, BID
     Route: 048
  12. LIPITOR [Concomitant]
     Dosage: 10 MG, QD
     Route: 048
  13. POTASSIUM CHLORIDE [Concomitant]
     Dosage: 10 MEQ
     Route: 048
  14. MANNITOL [Concomitant]
     Dosage: 25 GM
     Route: 042
     Dates: start: 20040322
  15. RED BLOOD CELLS [Concomitant]
     Dosage: 1 UNIT
  16. ZOCOR [Concomitant]
     Dosage: 20 MG, HS
     Route: 048
  17. AMBIEN [Concomitant]
     Dosage: 5-10 MG AT HS
     Route: 048
  18. NITROGLYCERIN [Concomitant]
     Dosage: UNK
     Route: 042
     Dates: start: 20040322, end: 20040322
  19. LASIX [Concomitant]
     Dosage: 40 MG, QD
     Route: 048
  20. HYDRALAZINE HCL [Concomitant]
     Dosage: 100 MG, QID
     Route: 048
  21. LOPRESSOR [Concomitant]
     Dosage: 75 MG, BID
     Route: 048
  22. HEPARIN [Concomitant]
     Dosage: 58,000 UNITS
     Route: 042
     Dates: start: 20040324
  23. DOPAMINE HCL [Concomitant]
     Dosage: UNK
     Route: 042
     Dates: start: 20040322
  24. VISIPAQUE [Concomitant]
     Dosage: 165 CC
     Route: 042
     Dates: start: 20040315

REACTIONS (13)
  - DEATH [None]
  - EMOTIONAL DISTRESS [None]
  - ANXIETY [None]
  - FEAR [None]
  - RENAL IMPAIRMENT [None]
  - RENAL INJURY [None]
  - UNEVALUABLE EVENT [None]
  - INJURY [None]
  - STRESS [None]
  - MYOCARDIAL INFARCTION [None]
  - PAIN [None]
  - MULTI-ORGAN FAILURE [None]
  - RENAL FAILURE [None]
